FAERS Safety Report 5097248-2 (Version None)
Quarter: 2006Q3

REPORT INFORMATION
  Report Type: 
  Country: None (occurrence: None)
  Receive Date: 20060901
  Receipt Date: 20060825
  Transmission Date: 20061208
  Serious: Yes (Hospitalization)
  Sender: FDA-Public Use
  Company Number: 229154

PATIENT
  Age: 25 Year
  Sex: Male
  Weight: 115.2 kg

DRUGS (6)
  1. XOLAIR [Suspect]
     Indication: ASTHMA
     Dosage: 375 MG, Q2W, SUBCUTANEOUS
     Route: 058
     Dates: start: 20040508
  2. DILANTIN [Concomitant]
  3. PROTONIX [Concomitant]
  4. ADVAIR DISKUS 100/50 [Concomitant]
  5. ALBUTEROL (ALBUTEROL/ALBUTEROL SULFATE) [Concomitant]
  6. ATROVENT [Concomitant]

REACTIONS (2)
  - IMPAIRED HEALING [None]
  - OPEN WOUND [None]
